FAERS Safety Report 11069156 (Version 1)
Quarter: 2015Q2

REPORT INFORMATION
  Report Type: Spontaneous
  Country: PT (occurrence: PT)
  Receive Date: 20150427
  Receipt Date: 20150427
  Transmission Date: 20150821
  Serious: Yes (Other)
  Sender: FDA-Public Use
  Company Number: PT-GE HEALTHCARE MEDICAL DIAGNOSTICS-VISP-PR-1504S-0134

PATIENT
  Age: 64 Year
  Sex: Female

DRUGS (4)
  1. VISIPAQUE [Suspect]
     Active Substance: IODIXANOL
     Indication: DIAGNOSTIC PROCEDURE
  2. BETAHISTINE [Concomitant]
     Active Substance: BETAHISTINE
  3. DAFLON [Concomitant]
     Active Substance: DIOSMIN\HESPERIDIN
  4. VISIPAQUE [Suspect]
     Active Substance: IODIXANOL
     Indication: PRODUCT USED FOR UNKNOWN INDICATION
     Route: 042
     Dates: start: 20150407, end: 20150407

REACTIONS (1)
  - Rash erythematous [Recovered/Resolved]

NARRATIVE: CASE EVENT DATE: 20150407
